FAERS Safety Report 14499102 (Version 2)
Quarter: 2019Q4

REPORT INFORMATION
  Report Type: Spontaneous
  Country: US (occurrence: US)
  Receive Date: 20180207
  Receipt Date: 20191209
  Transmission Date: 20200122
  Serious: Yes (Other)
  Sender: FDA-Public Use
  Company Number: US-JAZZ-2013-077

PATIENT
  Age: 35 Year
  Sex: Female
  Weight: 105 kg

DRUGS (11)
  1. PRIALT [Suspect]
     Active Substance: ZICONOTIDE ACETATE
     Dosage: 0.23 MCG, ONCE/HOUR
     Route: 037
     Dates: start: 20130312, end: 20130410
  2. PRIALT [Suspect]
     Active Substance: ZICONOTIDE ACETATE
     Dosage: 0.19 MCG, ONCE/HOUR
     Route: 037
     Dates: start: 20130226, end: 20130312
  3. PRIALT [Suspect]
     Active Substance: ZICONOTIDE ACETATE
     Dosage: 0.145 ?G, ONCE/HOUR
     Route: 037
     Dates: end: 201306
  4. PRIALT [Suspect]
     Active Substance: ZICONOTIDE ACETATE
     Dosage: 0.29 MCG, ONCE/HOUR
     Route: 037
     Dates: start: 20130430, end: 201306
  5. PRIALT [Suspect]
     Active Substance: ZICONOTIDE ACETATE
     Dosage: 0.32 MCG, ONCE/HOUR
     Route: 037
     Dates: start: 201306, end: 201306
  6. PRIALT [Suspect]
     Active Substance: ZICONOTIDE ACETATE
     Dosage: 0.33 MCG, ONCE/HOUR
     Route: 037
     Dates: start: 201306, end: 201306
  7. PRIALT [Suspect]
     Active Substance: ZICONOTIDE ACETATE
     Dosage: 0.27 MCG, ONCE/HOUR
     Route: 037
     Dates: start: 20130410, end: 20130430
  8. PRIALT [Suspect]
     Active Substance: ZICONOTIDE ACETATE
     Indication: PAIN
     Dosage: UNK ?G, UNK
     Route: 037
     Dates: start: 201206
  9. PRIALT [Suspect]
     Active Substance: ZICONOTIDE ACETATE
     Indication: COMPLEX REGIONAL PAIN SYNDROME
     Dosage: UNK MCG, ONCE/HOUR
     Route: 037
     Dates: end: 20130226
  10. LYRICA [Suspect]
     Active Substance: PREGABALIN
  11. OXYCODONE HYDROCHLORIDE. [Concomitant]
     Active Substance: OXYCODONE HYDROCHLORIDE

REACTIONS (25)
  - Pain [Unknown]
  - Suicidal ideation [Unknown]
  - Lip swelling [Unknown]
  - Drug ineffective [Not Recovered/Not Resolved]
  - Homicidal ideation [Unknown]
  - Product dispensing error [Unknown]
  - Hallucination, visual [Recovered/Resolved]
  - Decreased appetite [Not Recovered/Not Resolved]
  - Hallucination [Recovered/Resolved]
  - Cardiac disorder [Unknown]
  - Tongue exfoliation [Unknown]
  - Middle ear effusion [Unknown]
  - Hallucination, tactile [Recovered/Resolved]
  - Joint instability [Unknown]
  - Hallucination, auditory [Recovered/Resolved]
  - Fall [Unknown]
  - Dry mouth [Unknown]
  - Device issue [Unknown]
  - Weight decreased [Not Recovered/Not Resolved]
  - Sinus disorder [Unknown]
  - Amnesia [Unknown]
  - Taste disorder [Unknown]
  - Seizure [Unknown]
  - Photopsia [Unknown]
  - Depressed mood [Unknown]

NARRATIVE: CASE EVENT DATE: 2012
